FAERS Safety Report 20779655 (Version 1)
Quarter: 2022Q2

REPORT INFORMATION
  Report Type: Spontaneous
  Country: CA (occurrence: CA)
  Receive Date: 20220503
  Receipt Date: 20220503
  Transmission Date: 20220720
  Serious: Yes (Death, Other)
  Sender: FDA-Public Use
  Company Number: CA-SANOFI-01082590

PATIENT
  Age: 69 Year
  Sex: Female

DRUGS (2)
  1. LOVENOX [Suspect]
     Active Substance: ENOXAPARIN SODIUM
     Indication: Product used for unknown indication
     Dosage: UNK
     Dates: start: 20220411, end: 20220414
  2. WARFARIN [Concomitant]
     Active Substance: WARFARIN
     Dosage: UNK
     Dates: end: 20220410

REACTIONS (12)
  - Pain [Fatal]
  - Dizziness [Fatal]
  - Nausea [Fatal]
  - Blood pressure decreased [Fatal]
  - Disease complication [Fatal]
  - Internal haemorrhage [Fatal]
  - Atrial fibrillation [Fatal]
  - Dyspnoea [Fatal]
  - Haemoglobin decreased [Fatal]
  - Malaise [Fatal]
  - Cardiac operation [Unknown]
  - Surgery [Unknown]

NARRATIVE: CASE EVENT DATE: 20220415
